FAERS Safety Report 5342479-7 (Version None)
Quarter: 2007Q2

REPORT INFORMATION
  Report Type: 
  Country: None (occurrence: None)
  Receive Date: 20070601
  Receipt Date: 20070521
  Transmission Date: 20071010
  Serious: Yes (Death)
  Sender: FDA-Public Use
  Company Number: US-SHR-US-2007-002078

PATIENT
  Age: 17 Year
  Sex: Male

DRUGS (9)
  1. MAGNEVIST [Suspect]
     Dosage: UNK, 1 DOSE
  2. OMNISCAN [Suspect]
     Dosage: UNK, 1 DOSE
     Dates: start: 20030323, end: 20030323
  3. OMNISCAN [Suspect]
     Dosage: UNK, 1 DOSE
     Dates: start: 20030730, end: 20030730
  4. OMNISCAN [Suspect]
     Dosage: UNK, 1 DOSE
     Dates: start: 20030825, end: 20030825
  5. OMNISCAN [Suspect]
     Dosage: UNK, 1 DOSE
     Dates: start: 20040802, end: 20040802
  6. OMNISCAN [Suspect]
     Dosage: UNK, 1 DOSE
     Dates: start: 20041020, end: 20041020
  7. OPTIMARK [Suspect]
     Dosage: UNK, 1 DOSE
     Dates: start: 20040514, end: 20040514
  8. PROHANCE [Suspect]
     Dosage: UNK, 1 DOSE
  9. MULTIHANCE [Suspect]
     Dosage: UNK, 1 DOSE

REACTIONS (1)
  - DEATH [None]
